FAERS Safety Report 13712029 (Version 1)
Quarter: 2017Q3

REPORT INFORMATION
  Report Type: Spontaneous
  Country: US (occurrence: US)
  Receive Date: 20170703
  Receipt Date: 20170703
  Transmission Date: 20171127
  Serious: Yes (Other)
  Sender: FDA-Public Use
  Company Number: US-JNJFOC-20170411226

PATIENT
  Age: 2 Decade
  Sex: Male

DRUGS (1)
  1. TOPAMAX [Suspect]
     Active Substance: TOPIRAMATE
     Indication: JUVENILE MYOCLONIC EPILEPSY
     Route: 048
     Dates: start: 20040712

REACTIONS (4)
  - Renal pain [Unknown]
  - Drug ineffective [Unknown]
  - Decreased appetite [Unknown]
  - Sleep disorder [Unknown]

NARRATIVE: CASE EVENT DATE: 20040809
